FAERS Safety Report 6929216-7 (Version None)
Quarter: 2010Q3

REPORT INFORMATION
  Report Type: 
  Country: None (occurrence: None)
  Receive Date: 20100813
  Receipt Date: 20100729
  Transmission Date: 20110219
  Serious: Yes (Disabling)
  Sender: FDA-Public Use
  Company Number: AMI0023582

PATIENT
  Age: 68 Year

DRUGS (3)
  1. TIMOLOL MALEATE [Suspect]
     Indication: GLAUCOMA
     Dosage: /046
     Dates: start: 20090318
  2. DORZOLAMIDE HCL AND TIMOLOL MALEATE [Suspect]
     Indication: GLAUCOMA
     Dosage: 1 DROP/BID/046
     Dates: start: 20090527
  3. COSOPT [Suspect]
     Dosage: /047
     Dates: start: 20090703, end: 20091001

REACTIONS (8)
  - DIZZINESS [None]
  - DRUG ERUPTION [None]
  - DRUG INEFFECTIVE [None]
  - EYE HAEMORRHAGE [None]
  - MACULAR DEGENERATION [None]
  - NAUSEA [None]
  - RETINAL ANEURYSM [None]
  - VISUAL IMPAIRMENT [None]
